FAERS Safety Report 6201741-6 (Version None)
Quarter: 2009Q2

REPORT INFORMATION
  Report Type: 
  Country: None (occurrence: None)
  Receive Date: 20090526
  Receipt Date: 20090518
  Transmission Date: 20091009
  Serious: Yes (Other)
  Sender: FDA-Public Use
  Company Number: DE-TEVA-195532ISR

PATIENT
  Sex: Female

DRUGS (1)
  1. CARBOPLATIN [Suspect]
     Route: 042
     Dates: start: 20090518, end: 20090518

REACTIONS (6)
  - BLOOD PRESSURE INCREASED [None]
  - DYSPNOEA [None]
  - ERYTHEMA [None]
  - FEELING HOT [None]
  - TACHYCARDIA [None]
  - TREMOR [None]
